FAERS Safety Report 19875547 (Version 2)
Quarter: 2022Q1

REPORT INFORMATION
  Report Type: Spontaneous
  Country: US (occurrence: US)
  Receive Date: 20210923
  Receipt Date: 20220316
  Transmission Date: 20220423
  Serious: No
  Sender: FDA-Public Use
  Company Number: US-SAREPTA THERAPEUTICS INC.-SRP2021-001649

PATIENT
  Age: 6 Year
  Sex: Male
  Weight: 19.955 kg

DRUGS (2)
  1. VYONDYS 53 [Suspect]
     Active Substance: GOLODIRSEN
     Indication: Duchenne muscular dystrophy
     Dosage: 650 MILLIGRAM, WEEKLY
     Route: 042
     Dates: start: 202010, end: 20210824
  2. VYONDYS 53 [Suspect]
     Active Substance: GOLODIRSEN
     Dosage: UNK
     Route: 042
     Dates: start: 20211008

REACTIONS (2)
  - Product dose omission issue [Unknown]
  - No adverse event [Unknown]

NARRATIVE: CASE EVENT DATE: 20210824
